FAERS Safety Report 5362423-6 (Version None)
Quarter: 2007Q2

REPORT INFORMATION
  Report Type: 
  Country: None (occurrence: None)
  Receive Date: 20070619
  Receipt Date: 20050310
  Transmission Date: 20071010
  Serious: Yes (Hospitalization)
  Sender: FDA-Public Use
  Company Number: US-ASTRAZENECA-2005UW01947

PATIENT
  Age: 12 Year
  Sex: Male
  Weight: 50.9 kg

DRUGS (6)
  1. SEROQUEL [Suspect]
     Indication: BIPOLAR DISORDER
     Route: 048
     Dates: start: 20050121, end: 20050128
  2. RISERIDONE [Concomitant]
     Indication: BIPOLAR DISORDER
     Dosage: START DATE=}1 MONTH
     Route: 048
     Dates: end: 20050120
  3. CLONIDINE [Concomitant]
     Indication: BIPOLAR DISORDER
     Dosage: START DATE=}1 MONTH
     Route: 048
     Dates: end: 20050111
  4. ARIPIPRAZOLE [Concomitant]
     Indication: BIPOLAR DISORDER
     Dosage: START DATE=}1 MONTH
     Route: 048
     Dates: end: 20050111
  5. DIVALPROEX SODIUM [Concomitant]
     Indication: BIPOLAR DISORDER
     Dosage: START DATE=}1 MONTH
     Route: 048
     Dates: end: 20041214
  6. LORAZEPAM [Concomitant]
     Indication: AGITATION
     Dates: start: 20050101

REACTIONS (2)
  - BIPOLAR DISORDER [None]
  - SUICIDAL IDEATION [None]
